FAERS Safety Report 9722247 (Version 1)
Quarter: 2013Q4

REPORT INFORMATION
  Report Type: Spontaneous
  Country: ES (occurrence: ES)
  Receive Date: 20131202
  Receipt Date: 20131202
  Transmission Date: 20140711
  Serious: Yes (Other)
  Sender: FDA-Public Use
  Company Number: ES-JNJFOC-20131113633

PATIENT
  Sex: Female

DRUGS (5)
  1. DOXORUBICIN [Suspect]
     Indication: BREAST CANCER
     Route: 042
  2. CYCLOPHOSPHAMIDE [Suspect]
     Indication: BREAST CANCER
     Route: 065
  3. FILGRASTIM [Suspect]
     Indication: BREAST CANCER
     Dosage: 5 G/KG, 3 TO 10 OF EACH CYCLE
     Route: 065
  4. DOCETAXEL [Suspect]
     Indication: BREAST CANCER
     Route: 065
  5. TRASTUZUMAB [Suspect]
     Indication: BREAST CANCER
     Dosage: LOADING DOSE OF 8 MG/KG
     Route: 065

REACTIONS (8)
  - Palmar-plantar erythrodysaesthesia syndrome [Unknown]
  - Asthenia [Unknown]
  - Nausea [Unknown]
  - Skin toxicity [Unknown]
  - Vomiting [Unknown]
  - Neutropenia [Unknown]
  - Febrile neutropenia [Unknown]
  - Neutropenia [Unknown]
